FAERS Safety Report 10499022 (Version 2)
Quarter: 2016Q1

REPORT INFORMATION
  Report Type: Spontaneous
  Country: US (occurrence: US)
  Receive Date: 20141006
  Receipt Date: 20160205
  Transmission Date: 20160525
  Serious: Yes (Hospitalization)
  Sender: FDA-Public Use
  Company Number: US-ACTELION-A-NJ2014-106179

PATIENT
  Age: 69 Year
  Sex: Female

DRUGS (19)
  1. AMIODARONE [Concomitant]
     Active Substance: AMIODARONE
     Dosage: UNK
  2. COUMADIN [Concomitant]
     Active Substance: WARFARIN SODIUM
     Dosage: UNK
  3. LANOXIN [Concomitant]
     Active Substance: DIGOXIN
  4. LIPITOR [Concomitant]
     Active Substance: ATORVASTATIN CALCIUM
     Dosage: UNK
  5. COLCRYS [Concomitant]
     Active Substance: COLCHICINE
  6. BENICAR [Concomitant]
     Active Substance: OLMESARTAN MEDOXOMIL
     Dosage: UNK
  7. FUROSEMIDE. [Concomitant]
     Active Substance: FUROSEMIDE
     Dosage: UNK
  8. WELCHOL [Concomitant]
     Active Substance: COLESEVELAM HYDROCHLORIDE
  9. VENTAVIS [Suspect]
     Active Substance: ILOPROST
     Indication: PULMONARY ARTERIAL HYPERTENSION
     Dosage: 6 TREATMENTS PER DAY
     Route: 055
     Dates: start: 20100830
  10. SYMLINPEN [Concomitant]
     Active Substance: PRAMLINTIDE ACETATE
     Dosage: UNK
  11. COREG [Concomitant]
     Active Substance: CARVEDILOL
     Dosage: UNK
  12. BUMETANIDE. [Concomitant]
     Active Substance: BUMETANIDE
  13. POTASSIUM [Concomitant]
     Active Substance: POTASSIUM
  14. SPIRIVA [Concomitant]
     Active Substance: TIOTROPIUM BROMIDE MONOHYDRATE
  15. ADCIRCA [Concomitant]
     Active Substance: TADALAFIL
     Dosage: 40 MG, UNK
  16. AMARYL [Concomitant]
     Active Substance: GLIMEPIRIDE
     Dosage: UNK
  17. ULORIC [Concomitant]
     Active Substance: FEBUXOSTAT
  18. TRACLEER [Suspect]
     Active Substance: BOSENTAN
     Indication: PULMONARY ARTERIAL HYPERTENSION
     Dosage: 125 MG, UNK
     Route: 048
     Dates: start: 20110516
  19. CYCLOBENZAPRINE [Concomitant]
     Active Substance: CYCLOBENZAPRINE

REACTIONS (3)
  - Fluid retention [Recovered/Resolved]
  - Atrial fibrillation [Unknown]
  - Cardiac failure [Recovered/Resolved]

NARRATIVE: CASE EVENT DATE: 20140901
